FAERS Safety Report 9082649 (Version 1)
Quarter: 2013Q1

REPORT INFORMATION
  Report Type: Report from Study
  Country: US (occurrence: US)
  Receive Date: 20130130
  Receipt Date: 20130130
  Transmission Date: 20140127
  Serious: No
  Sender: FDA-Public Use
  Company Number: US-ABBOTT-11P-163-0875404-00

PATIENT
  Sex: Female

DRUGS (1)
  1. HUMIRA 40 MG/0.8 ML PEN [Suspect]
     Indication: MATERNAL EXPOSURE TIMING UNSPECIFIED
     Route: 064

REACTIONS (6)
  - Foetal exposure during pregnancy [Unknown]
  - Gastrooesophageal reflux disease [Not Recovered/Not Resolved]
  - Weight decreased [Recovered/Resolved]
  - Normal newborn [Unknown]
  - Abdominal pain upper [Not Recovered/Not Resolved]
  - Screaming [Not Recovered/Not Resolved]
